FAERS Safety Report 8709266 (Version 4)
Quarter: 2013Q3

REPORT INFORMATION
  Report Type: Report from Study
  Country: US (occurrence: US)
  Receive Date: 20120806
  Receipt Date: 20130711
  Transmission Date: 20140515
  Serious: Yes (Hospitalization, Other)
  Sender: FDA-Public Use
  Company Number: US-ACTELION-A-US2012-69419

PATIENT
  Age: 63 Year
  Sex: Female

DRUGS (3)
  1. TRACLEER [Suspect]
     Indication: PULMONARY ARTERIAL HYPERTENSION
     Dosage: UNK
     Route: 048
  2. AMLODIPINE [Concomitant]
  3. SPIRONOLACTONE [Concomitant]

REACTIONS (9)
  - Disorientation [Unknown]
  - Wound [Recovering/Resolving]
  - Wound closure [Recovering/Resolving]
  - Oxygen saturation decreased [Unknown]
  - Fall [Unknown]
  - Contusion [Unknown]
  - Oxygen consumption [Recovering/Resolving]
  - Syncope [Recovering/Resolving]
  - Head injury [Unknown]
